FAERS Safety Report 4868854-2 (Version None)
Quarter: 2005Q4

REPORT INFORMATION
  Report Type: 
  Country: None (occurrence: None)
  Receive Date: 20051223
  Receipt Date: 20050609
  Transmission Date: 20060501
  Serious: Yes (Hospitalization)
  Sender: FDA-Public Use
  Company Number: 2005085572

PATIENT
  Age: 38 Year
  Sex: Male
  Weight: 100 kg

DRUGS (4)
  1. PREGABALIN (PREGABALIN) [Suspect]
     Indication: PARTIAL SEIZURES
     Dosage: 600 MG (300  MG, 2 IN 1 D), ORAL
     Route: 048
     Dates: start: 20050427
  2. OXCARBAZEPINE [Concomitant]
  3. TIAGABINE HCL [Concomitant]
  4. CETIRIZINE HCL [Concomitant]

REACTIONS (3)
  - COMPLEX PARTIAL SEIZURES [None]
  - CONDITION AGGRAVATED [None]
  - PARTIAL SEIZURES WITH SECONDARY GENERALISATION [None]
